FAERS Safety Report 8111640-0 (Version None)
Quarter: 2012Q1

REPORT INFORMATION
  Report Type: 
  Country: None (occurrence: None)
  Receive Date: 20120203
  Receipt Date: 20120123
  Transmission Date: 20120608
  Serious: Yes (Other)
  Sender: FDA-Public Use
  Company Number: US-UCBSA-050398

PATIENT
  Sex: Female

DRUGS (2)
  1. CIMZIA [Suspect]
     Dosage: 400 MG ONCE A MONTH
     Route: 058
  2. CIMZIA [Suspect]
     Indication: CROHN'S DISEASE
     Dosage: UNKNOWN DOSE
     Route: 058
     Dates: start: 20090101

REACTIONS (5)
  - PSORIASIS [None]
  - HYPOAESTHESIA [None]
  - NIGHT SWEATS [None]
  - PARAESTHESIA [None]
  - ARTHRALGIA [None]
